FAERS Safety Report 5340338-7 (Version None)
Quarter: 2007Q2

REPORT INFORMATION
  Report Type: 
  Country: None (occurrence: None)
  Receive Date: 20070405
  Receipt Date: 20070102
  Transmission Date: 20071010
  Serious: No
  Sender: FDA-Public Use
  Company Number: US200701000246

PATIENT
  Age: 62 Year
  Sex: Male

DRUGS (4)
  1. CYMBALTA [Suspect]
     Indication: PAIN
     Dosage: 20 MG, 2/D
     Dates: start: 20060901, end: 20060101
  2. VALIUM /NET/ (DIAZEPAM) [Concomitant]
  3. TYLENOL /USA/ (PARACETAMOL) [Concomitant]
  4. CAFFEINE (CAFFEINE) [Concomitant]

REACTIONS (2)
  - CONFUSIONAL STATE [None]
  - INSOMNIA [None]
